FAERS Safety Report 6540121-0 (Version None)
Quarter: 2010Q1

REPORT INFORMATION
  Report Type: 
  Country: None (occurrence: None)
  Receive Date: 20100115
  Receipt Date: 20100104
  Transmission Date: 20100710
  Serious: Yes (Hospitalization)
  Sender: FDA-Public Use
  Company Number: GB-WATSON-2010-00102

PATIENT
  Age: 76 Year
  Sex: Male

DRUGS (3)
  1. PREDNISOLONE [Suspect]
     Indication: PNEUMONIA
     Dosage: 30 TAPER TO 1 MG, DAILY
     Route: 048
  2. CIPROFLOXACIN HCL [Suspect]
     Indication: PNEUMONIA
     Dosage: 1000 MG, DAILY
     Route: 048
  3. BENZYLPENICILLIN [Concomitant]
     Indication: PNEUMONIA
     Dosage: 1.2 G, QID

REACTIONS (6)
  - ARTHRALGIA [None]
  - CONTUSION [None]
  - GAIT DISTURBANCE [None]
  - LOCAL SWELLING [None]
  - TENDERNESS [None]
  - TENDON RUPTURE [None]
